FAERS Safety Report 23580136 (Version 1)
Quarter: 2024Q1

REPORT INFORMATION
  Report Type: Spontaneous
  Country: US (occurrence: US)
  Receive Date: 20240229
  Receipt Date: 20240229
  Transmission Date: 20240410
  Serious: Yes (Hospitalization)
  Sender: FDA-Public Use
  Company Number: US-IGSA-BIG0027774

PATIENT
  Sex: Female

DRUGS (5)
  1. GAMUNEX-C [Suspect]
     Active Substance: HUMAN IMMUNOGLOBULIN G
     Indication: Hypogammaglobulinaemia
     Dosage: 40 GRAM, Q.4WK.
     Route: 042
  2. BETAMETHASONE [Concomitant]
     Active Substance: BETAMETHASONE\BETAMETHASONE DIPROPIONATE
  3. CELESTONE [Concomitant]
     Active Substance: BETAMETHASONE
  4. DOXYCYCLINE [Concomitant]
     Active Substance: DOXYCYCLINE
     Dosage: 100 MILLIGRAM
  5. GEMTESA [Concomitant]
     Active Substance: VIBEGRON

REACTIONS (3)
  - Product dose omission issue [Unknown]
  - Sepsis [Unknown]
  - Decreased appetite [Unknown]
